FAERS Safety Report 9247563 (Version 2)
Quarter: 2013Q3

REPORT INFORMATION
  Report Type: Report from Study
  Country: IL (occurrence: IL)
  Receive Date: 20130423
  Receipt Date: 20130919
  Transmission Date: 20140515
  Serious: Yes (Hospitalization)
  Sender: FDA-Public Use
  Company Number: PHHY2013IL039161

PATIENT
  Age: 54 Year
  Sex: Female

DRUGS (3)
  1. SANDOSTATIN LAR [Suspect]
     Indication: PANCREATIC NEUROENDOCRINE TUMOUR
     Dosage: 30 MG, QW2
     Dates: start: 20070807
  2. SANDOSTATIN LAR [Suspect]
     Dosage: 30 MG, QW2
     Dates: start: 20130403
  3. SANDOSTATIN LAR [Suspect]
     Dosage: 30 MG, QW2
     Dates: start: 20130821

REACTIONS (2)
  - Pyrexia [Unknown]
  - Oedema peripheral [Unknown]
